FAERS Safety Report 6955722-5 (Version None)
Quarter: 2010Q3

REPORT INFORMATION
  Report Type: 
  Country: None (occurrence: None)
  Receive Date: 20100830
  Receipt Date: 20100823
  Transmission Date: 20110219
  Serious: Yes (Death)
  Sender: FDA-Public Use
  Company Number: CH-ROCHE-712349

PATIENT
  Sex: Female
  Weight: 82 kg

DRUGS (6)
  1. METHOXY POLYETHYLENE GLYCOL-EPOETIN BETA [Suspect]
     Route: 058
     Dates: start: 20080729
  2. SPIRICORT [Concomitant]
     Indication: RHEUMATOID ARTHRITIS
     Route: 048
  3. OMEPRAZOLE [Concomitant]
     Route: 048
  4. MST [Concomitant]
  5. ALLOPURINOL [Concomitant]
  6. CALCITRIOL [Concomitant]

REACTIONS (1)
  - SEPSIS [None]
